FAERS Safety Report 7422124-7 (Version None)
Quarter: 2011Q2

REPORT INFORMATION
  Report Type: 
  Country: None (occurrence: None)
  Receive Date: 20110418
  Receipt Date: 20110411
  Transmission Date: 20111010
  Serious: Yes (Other)
  Sender: FDA-Public Use
  Company Number: US-RB-025595-11

PATIENT
  Age: 61 Year
  Sex: Female

DRUGS (1)
  1. SUBOXONE [Suspect]
     Indication: PRODUCT USED FOR UNKNOWN INDICATION
     Dosage: DOSING INFORMATION UNKNOWN
     Route: 065

REACTIONS (11)
  - HALLUCINATION [None]
  - EMOTIONAL DISORDER [None]
  - IMPAIRED DRIVING ABILITY [None]
  - DRUG WITHDRAWAL SYNDROME [None]
  - NECK PAIN [None]
  - BACK PAIN [None]
  - UNDERDOSE [None]
  - DIZZINESS [None]
  - PAIN IN EXTREMITY [None]
  - ARTHRALGIA [None]
  - BALANCE DISORDER [None]
